FAERS Safety Report 4823707-0 (Version None)
Quarter: 2005Q4

REPORT INFORMATION
  Report Type: 
  Country: None (occurrence: None)
  Receive Date: 20051107
  Receipt Date: 20051024
  Transmission Date: 20060501
  Serious: Yes (Death)
  Sender: FDA-Public Use
  Company Number: GXKR2005GB01860

PATIENT
  Age: 63 Year
  Sex: Male

DRUGS (13)
  1. LISINOPRIL [Suspect]
     Dosage: 10 MG, QD
  2. TRAMADOL HCL [Suspect]
     Dosage: 50 MG, QD
  3. SPIRIVA [Suspect]
     Indication: CHRONIC OBSTRUCTIVE PULMONARY DISEASE
     Dosage: 18 MCG, QD
  4. BUMETANIDE [Suspect]
     Dosage: 1 MG, QD
  5. HUMALOG [Suspect]
     Dosage: 100 IU/ML, QD
  6. FOSAMAX [Suspect]
     Dosage: 70 MG, ONCE/SINGLE
  7. HUMULIN(INSULIN HUMAN, INSULIN ISOPHANE, HUMAN BIOSYNTHETIC) [Suspect]
     Dosage: 100 U/ML, QD
  8. HUMULIN M3(INSULIN HUMAN) [Suspect]
     Dosage: 100 IU, QD,
  9. MONTELUKAST (MONTELUKAST) [Suspect]
     Dosage: 10 MG, QD
  10. NYSTATIN [Suspect]
     Dosage: 100000 UNITS, QD
  11. PARACETAMOL (PARACETAMOL) [Suspect]
     Dosage: 500 MG, QD
  12. ALBUTEROL [Suspect]
     Dosage: 100 MCG, QD, RESPIRATORY
     Route: 055
  13. SERETIDE               (FLUTICASONE PROPIONATE, SALMETEROL XINAFOATE) [Suspect]
     Dosage: 500

REACTIONS (1)
  - LOBAR PNEUMONIA [None]
